FAERS Safety Report 8669310 (Version 3)
Quarter: 2013Q1

REPORT INFORMATION
  Report Type: Spontaneous
  Country: US (occurrence: None)
  Receive Date: 20120629
  Receipt Date: 20130228
  Transmission Date: 20140127
  Serious: Yes (Hospitalization)
  Sender: FDA-Public Use
  Company Number: ACO_30795_2012

PATIENT
  Age: 49 Year
  Sex: Female

DRUGS (2)
  1. AMPYRA [Suspect]
     Dosage: 10 MG, BID, ORAL
     Route: 048
     Dates: start: 20120516, end: 20120522
  2. TYSABRI [Concomitant]

REACTIONS (2)
  - GRAND MAL CONVULSION [None]
  - COMA [None]
